FAERS Safety Report 25025331 (Version 7)
Quarter: 2025Q2

REPORT INFORMATION
  Report Type: Spontaneous
  Country: US (occurrence: US)
  Receive Date: 20250228
  Receipt Date: 20250603
  Transmission Date: 20250717
  Serious: No
  Sender: PFIZER
  Company Number: US-PFIZER INC-PV202500024120

PATIENT
  Age: 64 Year
  Sex: Male
  Weight: 69.524 kg

DRUGS (4)
  1. BRAFTOVI [Suspect]
     Active Substance: ENCORAFENIB
  2. BRAFTOVI [Suspect]
     Active Substance: ENCORAFENIB
     Dosage: 300 MG, DAILY (75 MG) CAPSULE DAILY FOR 30 DAYS)
     Route: 048
     Dates: start: 20250407
  3. MEKTOVI [Suspect]
     Active Substance: BINIMETINIB
  4. MEKTOVI [Suspect]
     Active Substance: BINIMETINIB
     Dosage: 30 MG, 2X/DAY (FOR 30 DAYS)
     Route: 048
     Dates: start: 20250407

REACTIONS (4)
  - Pain [Unknown]
  - Dysuria [Unknown]
  - Malaise [Unknown]
  - Eye disorder [Unknown]
